FAERS Safety Report 6867039-8 (Version None)
Quarter: 2010Q3

REPORT INFORMATION
  Report Type: 
  Country: None (occurrence: None)
  Receive Date: 20100722
  Receipt Date: 20100722
  Transmission Date: 20110219
  Serious: Yes (Other)
  Sender: FDA-Public Use
  Company Number: None

PATIENT
  Age: 72 Year
  Sex: Female
  Weight: 57.6068 kg

DRUGS (1)
  1. TOP CARE EAR WAX REMOVER - CARBIMIDE PEROXIDE 6.5 % [Suspect]
     Indication: CERUMEN IMPACTION
     Dosage: 2 DROPS, ONCE ONCE
     Dates: start: 20090624

REACTIONS (3)
  - EAR PAIN [None]
  - HYPOAESTHESIA [None]
  - PAIN [None]
